FAERS Safety Report 9478625 (Version 1)
Quarter: 2013Q3

REPORT INFORMATION
  Report Type: Report from Study
  Country: CA (occurrence: CA)
  Receive Date: 20130827
  Receipt Date: 20130827
  Transmission Date: 20140515
  Serious: Yes (Other)
  Sender: FDA-Public Use
  Company Number: CA-ABBOTT-13P-028-1136912-00

PATIENT
  Sex: Female

DRUGS (1)
  1. HUMIRA [Suspect]
     Indication: PSORIASIS
     Route: 058
     Dates: start: 20120703, end: 201212

REACTIONS (4)
  - Skin fissures [Unknown]
  - Abasia [Unknown]
  - Alopecia [Unknown]
  - Decreased immune responsiveness [Unknown]
